FAERS Safety Report 18649780 (Version 1)
Quarter: 2020Q4

REPORT INFORMATION
  Report Type: Spontaneous
  Country: TW (occurrence: TW)
  Receive Date: 20201222
  Receipt Date: 20201222
  Transmission Date: 20210114
  Serious: Yes (Death)
  Sender: FDA-Public Use
  Company Number: TW-FRESENIUS KABI-FK202013711

PATIENT
  Sex: Male

DRUGS (6)
  1. VANCOMYCIN [Suspect]
     Active Substance: VANCOMYCIN
     Indication: BACTERAEMIA
     Dosage: UNK
     Route: 065
  2. TEICOPLANIN [Concomitant]
     Active Substance: TEICOPLANIN
     Indication: BACTERAEMIA
     Dosage: UNK
     Route: 065
  3. SULFAMETHOXAZOLE/TRIMETHOPRIM [Suspect]
     Active Substance: SULFAMETHOXAZOLE\TRIMETHOPRIM
     Indication: BACTERAEMIA
     Dosage: UNK
     Route: 065
  4. DAPTOMYCIN. [Suspect]
     Active Substance: DAPTOMYCIN
     Indication: BACTERAEMIA
     Dosage: UNK
     Route: 065
  5. TIGECYCLINE. [Concomitant]
     Active Substance: TIGECYCLINE
     Indication: BACTERAEMIA
     Dosage: UNK
     Route: 065
  6. LINEZOLID (MANUFACTURER UNKNOWN) [Suspect]
     Active Substance: LINEZOLID
     Indication: BACTERAEMIA
     Dosage: UNK
     Route: 065

REACTIONS (1)
  - Drug resistance [Fatal]
